FAERS Safety Report 15007414 (Version 1)
Quarter: 2018Q2

REPORT INFORMATION
  Report Type: Spontaneous
  Country: US (occurrence: US)
  Receive Date: 20180613
  Receipt Date: 20180613
  Transmission Date: 20180711
  Serious: Yes (Other)
  Sender: FDA-Public Use
  Company Number: US-ASTRAZENECA-2018SE74684

PATIENT
  Age: 70 Year
  Sex: Male

DRUGS (6)
  1. BRILINTA [Suspect]
     Active Substance: TICAGRELOR
     Indication: ARTERIAL CATHETERISATION
     Dosage: UNKNOWN
     Route: 048
     Dates: start: 20180601, end: 20180602
  2. LOPRESSOR [Concomitant]
     Active Substance: METOPROLOL TARTRATE
     Dosage: UNKNOWN
  3. RANEXA [Concomitant]
     Active Substance: RANOLAZINE
     Dosage: UNKNOWN
  4. FLOMAX [Concomitant]
     Active Substance: TAMSULOSIN HYDROCHLORIDE
     Dosage: UNKNOWN
  5. IMDUR [Suspect]
     Active Substance: ISOSORBIDE MONONITRATE
     Dosage: UNKNOWN
     Route: 048
  6. ASPIRIN. [Concomitant]
     Active Substance: ASPIRIN
     Route: 065

REACTIONS (5)
  - Chest pain [Unknown]
  - Urticaria [Recovered/Resolved]
  - Acute coronary syndrome [Unknown]
  - Oral herpes [Recovered/Resolved]
  - Rash [Recovered/Resolved]
